FAERS Safety Report 9090689 (Version 7)
Quarter: 2015Q4

REPORT INFORMATION
  Report Type: Spontaneous
  Country: CA (occurrence: CA)
  Receive Date: 20130131
  Receipt Date: 20151118
  Transmission Date: 20160305
  Serious: Yes (Other)
  Sender: FDA-Public Use
  Company Number: CA-ROCHE-GNE286479

PATIENT
  Age: 43 Year
  Sex: Female

DRUGS (12)
  1. XOLAIR [Suspect]
     Active Substance: OMALIZUMAB
     Route: 058
     Dates: start: 20130909
  2. XOLAIR [Suspect]
     Active Substance: OMALIZUMAB
     Route: 058
     Dates: start: 20091209
  3. PULMICORT TURBUHALER [Concomitant]
     Active Substance: BUDESONIDE
     Indication: PRODUCT USED FOR UNKNOWN INDICATION
  4. XOLAIR [Suspect]
     Active Substance: OMALIZUMAB
     Route: 058
     Dates: start: 20090430
  5. XOLAIR [Suspect]
     Active Substance: OMALIZUMAB
     Route: 058
     Dates: start: 201405
  6. SINGULAIR [Concomitant]
     Active Substance: MONTELUKAST SODIUM
     Indication: PRODUCT USED FOR UNKNOWN INDICATION
  7. XOLAIR [Suspect]
     Active Substance: OMALIZUMAB
     Route: 058
     Dates: start: 20130320
  8. XOLAIR [Suspect]
     Active Substance: OMALIZUMAB
     Route: 058
     Dates: start: 20140224
  9. SYMBICORT [Concomitant]
     Active Substance: BUDESONIDE\FORMOTEROL FUMARATE DIHYDRATE
     Indication: PRODUCT USED FOR UNKNOWN INDICATION
  10. XOLAIR [Suspect]
     Active Substance: OMALIZUMAB
     Indication: ASTHMA
     Dosage: 150 MG, 1/MONTH?EXPIRY DATE: JAN-2013
     Route: 058
     Dates: start: 20090130
  11. XOLAIR [Suspect]
     Active Substance: OMALIZUMAB
     Route: 058
     Dates: start: 20130123
  12. XOLAIR [Suspect]
     Active Substance: OMALIZUMAB
     Route: 058
     Dates: start: 20140812

REACTIONS (19)
  - Chest pain [Unknown]
  - Sinus congestion [Unknown]
  - Allergy to animal [Unknown]
  - Asthma [Unknown]
  - Influenza [Not Recovered/Not Resolved]
  - Nuclear magnetic resonance imaging abnormal [Unknown]
  - Pulmonary embolism [Unknown]
  - Rhinorrhoea [Unknown]
  - Rubber sensitivity [Unknown]
  - Dyspnoea [Unknown]
  - Sinusitis [Unknown]
  - Nasopharyngitis [Unknown]
  - Rhinitis allergic [Unknown]
  - Blood pressure increased [Not Recovered/Not Resolved]
  - Cough [Unknown]
  - Allergy to chemicals [Unknown]
  - Multiple sclerosis [Unknown]
  - Sputum retention [Unknown]
  - Dysstasia [Unknown]

NARRATIVE: CASE EVENT DATE: 201408
